FAERS Safety Report 8586756-5 (Version None)
Quarter: 2012Q3

REPORT INFORMATION
  Report Type: 
  Country: None (occurrence: None)
  Receive Date: 20120810
  Receipt Date: 20120806
  Transmission Date: 20120928
  Serious: Yes (Other)
  Sender: FDA-Public Use
  Company Number: US-PFIZER INC-2012191871

PATIENT
  Age: 72 Year
  Sex: Female
  Weight: 58.05 kg

DRUGS (3)
  1. ATORVASTATIN CALCIUM [Suspect]
     Indication: BLOOD CHOLESTEROL ABNORMAL
     Dosage: 40 MG, DAILY
     Dates: end: 20120101
  2. ATORVASTATIN CALCIUM [Suspect]
     Dosage: 40 MG, DAILY
     Dates: start: 20120805
  3. AMIODARONE [Concomitant]
     Indication: ATRIAL FIBRILLATION
     Dosage: 200 MG, 2X/WEEK

REACTIONS (8)
  - MUSCULOSKELETAL PAIN [None]
  - DECREASED ACTIVITY [None]
  - MUSCULOSKELETAL DISORDER [None]
  - NECK PAIN [None]
  - PAIN IN EXTREMITY [None]
  - HEADACHE [None]
  - BLOOD TEST ABNORMAL [None]
  - ARTHRITIS [None]
